FAERS Safety Report 4845817-4 (Version None)
Quarter: 2005Q4

REPORT INFORMATION
  Report Type: 
  Country: None (occurrence: None)
  Receive Date: 20051201
  Receipt Date: 20051115
  Transmission Date: 20060501
  Serious: Yes (Hospitalization)
  Sender: FDA-Public Use
  Company Number: 2005BI020865

PATIENT
  Age: 47 Year
  Sex: Male
  Weight: 92 kg

DRUGS (14)
  1. ZEVALIN [Suspect]
     Indication: BONE MARROW CONDITIONING REGIMEN
     Dosage: 1X; IV
     Route: 042
  2. ZEVALIN [Suspect]
     Indication: NON-HODGKIN'S LYMPHOMA
     Dosage: 0.4 MCI/KG; X1; IV
     Route: 042
     Dates: start: 20050706, end: 20050706
  3. ACYCLOVIR [Concomitant]
  4. CASPOFUNGIN [Concomitant]
  5. AMPHOTERICIN B [Concomitant]
  6. HEPARIN [Concomitant]
  7. PANTOPRAZOLE [Concomitant]
  8. MORPHINE [Concomitant]
  9. NEFOPAM [Concomitant]
  10. VEPESID [Concomitant]
  11. CYTARABINE [Concomitant]
  12. MELPHALAN [Concomitant]
  13. RITUXIMAB [Concomitant]
  14. BCNU [Concomitant]

REACTIONS (3)
  - BONE MARROW FAILURE [None]
  - BONE MARROW TOXICITY [None]
  - STEM CELL TRANSPLANT [None]
